FAERS Safety Report 12348120 (Version 2)
Quarter: 2016Q3

REPORT INFORMATION
  Report Type: Spontaneous
  Country: US (occurrence: US)
  Receive Date: 20160509
  Receipt Date: 20160711
  Transmission Date: 20161109
  Serious: Yes (Other)
  Sender: FDA-Public Use
  Company Number: US-BAYER-2016-084264

PATIENT
  Age: 30 Year
  Sex: Female
  Weight: 75.61 kg

DRUGS (1)
  1. MIRENA [Suspect]
     Active Substance: LEVONORGESTREL
     Indication: CONTRACEPTION
     Dosage: 20 MCG/24HR, CONT
     Route: 015
     Dates: start: 20151208, end: 20160128

REACTIONS (7)
  - Pregnancy with contraceptive device [Recovered/Resolved]
  - Abortion spontaneous [Recovered/Resolved]
  - Back pain [None]
  - Drug ineffective [None]
  - Abdominal pain [None]
  - Haemorrhage in pregnancy [Recovered/Resolved]
  - Dizziness [None]

NARRATIVE: CASE EVENT DATE: 201512
